FAERS Safety Report 7406947-6 (Version None)
Quarter: 2011Q2

REPORT INFORMATION
  Report Type: 
  Country: None (occurrence: None)
  Receive Date: 20110411
  Receipt Date: 20110404
  Transmission Date: 20111010
  Serious: No
  Sender: FDA-Public Use
  Company Number: US-PFIZER INC-2011059066

PATIENT
  Sex: Female
  Weight: 56.7 kg

DRUGS (2)
  1. WELLBUTRIN [Concomitant]
     Indication: DEPRESSION
     Dosage: 300 MG, 1X/DAY
     Route: 048
     Dates: start: 20100101
  2. PRISTIQ [Suspect]
     Indication: DEPRESSION
     Dosage: 50 MG, 1X/DAY
     Route: 048
     Dates: start: 20110308, end: 20110310

REACTIONS (2)
  - VOMITING [None]
  - NAUSEA [None]
